FAERS Safety Report 21488924 (Version 1)
Quarter: 2022Q4

REPORT INFORMATION
  Report Type: Spontaneous
  Country: GB (occurrence: GB)
  Receive Date: 20221021
  Receipt Date: 20221021
  Transmission Date: 20230113
  Serious: Yes (Other)
  Sender: FDA-Public Use
  Company Number: GB-INCYTE CORPORATION-2022IN009480

PATIENT

DRUGS (7)
  1. OXALIPLATIN [Suspect]
     Active Substance: OXALIPLATIN
     Indication: Product used for unknown indication
     Dosage: UNK
     Route: 065
  2. LENALIDOMIDE [Suspect]
     Active Substance: LENALIDOMIDE
     Indication: Non-Hodgkin^s lymphoma
     Dosage: UNK
     Route: 065
     Dates: start: 20220512
  3. TAFASITAMAB [Suspect]
     Active Substance: TAFASITAMAB
     Indication: Non-Hodgkin^s lymphoma
     Dosage: 12 MILLIGRAM/KILOGRAM, UNK
     Route: 042
     Dates: start: 20220512
  4. CHLORPHENIRAMINE MALEATE [Concomitant]
     Active Substance: CHLORPHENIRAMINE MALEATE
     Indication: Product used for unknown indication
     Dosage: 10 MILLIGRAM, UNK
     Route: 040
     Dates: start: 20220512
  5. ACETAMINOPHEN [Concomitant]
     Active Substance: ACETAMINOPHEN
     Indication: Product used for unknown indication
     Dosage: 1 GRAM, UNK
     Route: 048
     Dates: start: 20220512
  6. SODIUM CHLORIDE [Concomitant]
     Active Substance: SODIUM CHLORIDE
     Indication: Catheter management
     Dosage: 0.5 LITER, UNK
     Route: 042
     Dates: start: 20220512
  7. SODIUM CHLORIDE [Concomitant]
     Active Substance: SODIUM CHLORIDE
     Dosage: 500 MILLILITER, UNK
     Route: 042
     Dates: start: 20220512

REACTIONS (11)
  - Necrotic lymphadenopathy [Unknown]
  - Renal impairment [Unknown]
  - Anaphylactic reaction [Unknown]
  - Vascular compression [Unknown]
  - Presyncope [Unknown]
  - Blood sodium decreased [Unknown]
  - Anxiety [Unknown]
  - General physical health deterioration [Unknown]
  - Therapy partial responder [Unknown]
  - Poor venous access [Unknown]
  - Off label use [Unknown]

NARRATIVE: CASE EVENT DATE: 20220512
